FAERS Safety Report 7115628-8 (Version None)
Quarter: 2010Q4

REPORT INFORMATION
  Report Type: 
  Country: None (occurrence: None)
  Receive Date: 20101122
  Receipt Date: 20101111
  Transmission Date: 20110411
  Serious: Yes (Other)
  Sender: FDA-Public Use
  Company Number: AU-JNJFOC-20101105765

PATIENT
  Sex: Male

DRUGS (1)
  1. DURAGESIC-100 [Suspect]
     Indication: ILL-DEFINED DISORDER
     Route: 062

REACTIONS (5)
  - BEDRIDDEN [None]
  - FATIGUE [None]
  - PARAESTHESIA [None]
  - TREMOR [None]
  - WITHDRAWAL SYNDROME [None]
